FAERS Safety Report 10885197 (Version 1)
Quarter: 2015Q1

REPORT INFORMATION
  Report Type: Spontaneous
  Country: US (occurrence: US)
  Receive Date: 20150304
  Receipt Date: 20150304
  Transmission Date: 20150721
  Serious: Yes (Death)
  Sender: FDA-Public Use
  Company Number: US-BANPHARM-20153615

PATIENT
  Age: 20 Year
  Sex: Female

DRUGS (5)
  1. DIPHENHYDRAMINE UNKNOWN PRODUCT [Suspect]
     Active Substance: DIPHENHYDRAMINE
  2. ACETAMINOPHEN/ HYDROCODONE [Suspect]
     Active Substance: ACETAMINOPHEN\HYDROCODONE BITARTRATE
  3. CITALOPRAM [Suspect]
     Active Substance: CITALOPRAM HYDROBROMIDE
  4. ZOLPIDEM [Suspect]
     Active Substance: ZOLPIDEM\ZOLPIDEM TARTRATE
  5. CLONAZEPAM. [Suspect]
     Active Substance: CLONAZEPAM

REACTIONS (2)
  - Completed suicide [Fatal]
  - Exposure via ingestion [None]
